FAERS Safety Report 7399377-7 (Version None)
Quarter: 2011Q1

REPORT INFORMATION
  Report Type: 
  Country: None (occurrence: None)
  Receive Date: 20110329
  Receipt Date: 20110314
  Transmission Date: 20110831
  Serious: Yes (Other)
  Sender: FDA-Public Use
  Company Number: ACO_21501_2011

PATIENT
  Age: 63 Year
  Sex: Female

DRUGS (12)
  1. AMANTADINE HCL [Concomitant]
  2. MULTI-VIT (VITAMINS NOS) [Concomitant]
  3. CENTRUM SILVER /01292501/ (ASCORBIC ACID, CALCIUM, MINERALS NOS, RETIN [Concomitant]
  4. AMPYRA [Suspect]
     Indication: PRODUCT USED FOR UNKNOWN INDICATION
     Dosage: 10 MG, DAILY, ORAL
     Route: 048
     Dates: start: 20101205, end: 20101201
  5. CALCIUM (CALCIUM) [Concomitant]
  6. FLUOCINONIDE [Concomitant]
  7. CITRUCEL (METHYLCELLULOSE) [Concomitant]
  8. BONIVA [Concomitant]
  9. ASPIRIN [Concomitant]
  10. SANCTURA [Concomitant]
  11. ARICEPT [Concomitant]
  12. TROSPIUM (TROSPIUM) [Concomitant]

REACTIONS (13)
  - URINARY INCONTINENCE [None]
  - TONGUE BITING [None]
  - OEDEMA PERIPHERAL [None]
  - DISORIENTATION [None]
  - CONFUSIONAL STATE [None]
  - LYMPHOCYTE PERCENTAGE DECREASED [None]
  - RASH [None]
  - ARTHRALGIA [None]
  - BLOOD UREA INCREASED [None]
  - INAPPROPRIATE SCHEDULE OF DRUG ADMINISTRATION [None]
  - BLOOD GLUCOSE INCREASED [None]
  - GRAND MAL CONVULSION [None]
  - THERAPEUTIC RESPONSE UNEXPECTED [None]
